APPROVED DRUG PRODUCT: CARBINOXAMINE MALEATE
Active Ingredient: CARBINOXAMINE MALEATE
Strength: 6MG
Dosage Form/Route: TABLET;ORAL
Application: A207484 | Product #001 | TE Code: AA
Applicant: MIKART LLC
Approved: May 31, 2016 | RLD: No | RS: Yes | Type: RX